FAERS Safety Report 23774119 (Version 1)
Quarter: 2024Q2

REPORT INFORMATION
  Report Type: Spontaneous
  Country: CA (occurrence: CA)
  Receive Date: 20240423
  Receipt Date: 20240423
  Transmission Date: 20240716
  Serious: Yes (Other)
  Sender: FDA-Public Use
  Company Number: CA-TEVA-VS-3186913

PATIENT
  Age: 61 Year
  Sex: Female

DRUGS (8)
  1. METHOTREXATE SODIUM [Suspect]
     Active Substance: METHOTREXATE SODIUM
     Indication: Rheumatoid arthritis
     Route: 065
  2. COLCHICINE [Concomitant]
     Active Substance: COLCHICINE
     Indication: Product used for unknown indication
  3. HYDROXYCHLOROQUINE SULFATE [Concomitant]
     Indication: Product used for unknown indication
     Route: 065
  4. NIFEDIPINE [Concomitant]
     Active Substance: NIFEDIPINE
     Indication: Blood pressure abnormal
     Route: 065
  5. ORENCIA [Concomitant]
     Active Substance: ABATACEPT
     Indication: Product used for unknown indication
     Route: 065
  6. PREDNISONE [Concomitant]
     Active Substance: PREDNISONE
     Indication: Product used for unknown indication
     Route: 065
  7. SULFASALAZINE [Concomitant]
     Active Substance: SULFASALAZINE
     Indication: Rheumatoid arthritis
  8. TELMISARTAN [Concomitant]
     Active Substance: TELMISARTAN
     Indication: Blood pressure abnormal
     Route: 065

REACTIONS (2)
  - White blood cell count decreased [Unknown]
  - Treatment failure [Unknown]
